FAERS Safety Report 14626105 (Version 1)
Quarter: 2018Q1

REPORT INFORMATION
  Report Type: Spontaneous
  Country: AU (occurrence: AU)
  Receive Date: 20180312
  Receipt Date: 20180312
  Transmission Date: 20180509
  Serious: Yes (Death)
  Sender: FDA-Public Use
  Company Number: AU-ACTELION-A-CH2018-168772

PATIENT
  Age: 60 Year
  Sex: Female

DRUGS (2)
  1. OPSUMIT [Suspect]
     Active Substance: MACITENTAN
     Indication: SYSTEMIC SCLERODERMA
     Dosage: 10 MG, OD
     Route: 048
     Dates: start: 201408
  2. SILDENAFIL. [Concomitant]
     Active Substance: SILDENAFIL
     Indication: SYSTEMIC SCLERODERMA

REACTIONS (1)
  - Death [Fatal]
